FAERS Safety Report 6440981-8 (Version None)
Quarter: 2009Q4

REPORT INFORMATION
  Report Type: 
  Country: None (occurrence: None)
  Receive Date: 20091102
  Receipt Date: 20080502
  Transmission Date: 20100525
  Serious: Yes (Other)
  Sender: FDA-Public Use
  Company Number: CART-1000011

PATIENT
  Age: 33 Year
  Sex: Male
  Weight: 102 kg

DRUGS (1)
  1. CARTICEL [Suspect]
     Indication: CARTILAGE INJURY
     Dosage: NA, ONCE, INTRA-ARTICULAR
     Route: 014
     Dates: start: 20070514, end: 20070514

REACTIONS (1)
  - GRAFT OVERGROWTH [None]
